FAERS Safety Report 11451886 (Version 1)
Quarter: 2015Q3

REPORT INFORMATION
  Report Type: Spontaneous
  Country: US (occurrence: None)
  Receive Date: 20150902
  Receipt Date: 20150902
  Transmission Date: 20151125
  Serious: Yes (Hospitalization)
  Sender: FDA-Public Use
  Company Number: None

PATIENT
  Age: 54 Year
  Sex: Male
  Weight: 62.14 kg

DRUGS (2)
  1. RIBAVIRIN 200 MG [Suspect]
     Active Substance: RIBAVIRIN
     Indication: HEPATITIS C
     Dosage: 3 TAB IN AM, 2 TAB IN PM BID ORAL
     Route: 048
  2. SOVALDI [Concomitant]
     Active Substance: SOFOSBUVIR

REACTIONS (1)
  - Gastroenteritis viral [None]

NARRATIVE: CASE EVENT DATE: 20150901
